FAERS Safety Report 19507496 (Version 1)
Quarter: 2021Q3

REPORT INFORMATION
  Report Type: Spontaneous
  Country: US (occurrence: US)
  Receive Date: 20210708
  Receipt Date: 20210708
  Transmission Date: 20211014
  Serious: Yes (Hospitalization)
  Sender: FDA-Public Use
  Company Number: US-SLATE RUN PHARMACEUTICALS-21US000570

PATIENT

DRUGS (17)
  1. STEROIDS [Concomitant]
     Active Substance: UNSPECIFIED INGREDIENT
     Indication: PUSTULAR PSORIASIS
     Dosage: UNK SYSTEMIC USE
  2. STEROIDS [Concomitant]
     Active Substance: UNSPECIFIED INGREDIENT
     Dosage: UNK
     Route: 003
  3. GLUTATHIONE [Concomitant]
     Active Substance: GLUTATHIONE
     Indication: ELECTIVE PROCEDURE
     Route: 042
  4. SELENIUM [Concomitant]
     Active Substance: SELENIUM
     Indication: ELECTIVE PROCEDURE
     Route: 042
  5. ZINC. [Concomitant]
     Active Substance: ZINC
     Indication: ELECTIVE PROCEDURE
     Route: 042
  6. CYCLOSPORINE. [Concomitant]
     Active Substance: CYCLOSPORINE
     Dosage: 4 MILLIGRAM PER KILOGRAM, BID
     Route: 048
  7. PIPERACILLIN AND TAZOBACTAM [Concomitant]
     Active Substance: PIPERACILLIN SODIUM\TAZOBACTAM SODIUM
     Indication: PRODUCT USED FOR UNKNOWN INDICATION
  8. VITAMIN B COMPLEX [Concomitant]
     Active Substance: CYANOCOBALAMIN\DEXPANTHENOL\NIACINAMIDE\PYRIDOXINE HYDROCHLORIDE\RIBOFLAVIN 5^-PHOSPHATE SODIUM\THIAMINE HYDROCHLORIDE\VITAMIN B COMPLEX
     Indication: ELECTIVE PROCEDURE
     Route: 042
  9. OTHER THERAPEUTIC PRODUCTS [Concomitant]
     Active Substance: UNSPECIFIED INGREDIENT
     Indication: PRODUCT USED FOR UNKNOWN INDICATION
     Route: 042
  10. DOXYCYCLINE. [Concomitant]
     Active Substance: DOXYCYCLINE
     Dosage: UNK
  11. VANCOMYCIN HYDROCHLORIDE USP [Suspect]
     Active Substance: VANCOMYCIN HYDROCHLORIDE
     Indication: PRODUCT USED FOR UNKNOWN INDICATION
     Dosage: UNK
  12. MUPIROCIN. [Concomitant]
     Active Substance: MUPIROCIN
     Indication: PRODUCT USED FOR UNKNOWN INDICATION
     Dosage: UNK, BID
     Route: 003
  13. CYCLOSPORINE. [Concomitant]
     Active Substance: CYCLOSPORINE
     Indication: PUSTULAR PSORIASIS
     Dosage: 150 MILLIGRAM, BID
     Route: 048
  14. ASCORBIC ACID. [Concomitant]
     Active Substance: ASCORBIC ACID
     Indication: ELECTIVE PROCEDURE
     Route: 042
  15. DOXYCYCLINE. [Concomitant]
     Active Substance: DOXYCYCLINE
     Indication: PUSTULAR PSORIASIS
     Dosage: 100 MILLIGRAM, BID
     Route: 048
  16. CEPHALEXIN [CEFALEXIN] [Concomitant]
     Active Substance: CEPHALEXIN
     Indication: PUSTULAR PSORIASIS
  17. TRIAMCINOLONE [Concomitant]
     Active Substance: TRIAMCINOLONE
     Indication: PRODUCT USED FOR UNKNOWN INDICATION
     Dosage: UNK, BID
     Route: 003

REACTIONS (12)
  - Immunology test abnormal [Recovered/Resolved]
  - Skin erosion [Recovered/Resolved]
  - Post inflammatory pigmentation change [Unknown]
  - Rash pustular [Recovered/Resolved]
  - Dermatitis [Recovered/Resolved]
  - Epidermal necrosis [Recovered/Resolved]
  - Scar [Unknown]
  - Skin plaque [Recovered/Resolved]
  - Linear IgA disease [Unknown]
  - Genital erosion [Recovered/Resolved]
  - Rash papular [Recovered/Resolved]
  - Bullous haemorrhagic dermatosis [Recovered/Resolved]
